FAERS Safety Report 20863244 (Version 1)
Quarter: 2022Q2

REPORT INFORMATION
  Report Type: Spontaneous
  Country: US (occurrence: None)
  Receive Date: 20220522
  Receipt Date: 20220522
  Transmission Date: 20220721
  Serious: Yes (Other)
  Sender: FDA-Public Use
  Company Number: None

PATIENT
  Age: 73 Year
  Sex: Female
  Weight: 68.4 kg

DRUGS (11)
  1. PROLIA [Suspect]
     Active Substance: DENOSUMAB
     Indication: Osteoporosis
     Dosage: OTHER QUANTITY : 1 INJECTION(S);?OTHER FREQUENCY : 1 INJ. EVERY 6 MO.;?
     Route: 058
     Dates: start: 20210928, end: 20220329
  2. FLUTICASONE PROPIONATE [Concomitant]
     Active Substance: FLUTICASONE PROPIONATE
  3. Levocertirizine [Concomitant]
  4. Metroprolol succ er [Concomitant]
  5. MONTELUKAST [Concomitant]
     Active Substance: MONTELUKAST SODIUM
  6. MYRBETRIQ [Concomitant]
     Active Substance: MIRABEGRON
  7. BIOTIN [Concomitant]
     Active Substance: BIOTIN
  8. Citracal Calium + D 500 IU [Concomitant]
  9. D3 1000IU [Concomitant]
  10. FAMOTIDINE [Concomitant]
     Active Substance: FAMOTIDINE
  11. Mucinex ER [Concomitant]

REACTIONS (13)
  - Back pain [None]
  - Pain in extremity [None]
  - Pain in extremity [None]
  - Myalgia [None]
  - Fatigue [None]
  - Dyspnoea [None]
  - Chest discomfort [None]
  - Arthralgia [None]
  - Dyspepsia [None]
  - Flatulence [None]
  - Abdominal discomfort [None]
  - Blood urine present [None]
  - Arthralgia [None]

NARRATIVE: CASE EVENT DATE: 20220329
